FAERS Safety Report 5036023-1 (Version None)
Quarter: 2006Q2

REPORT INFORMATION
  Report Type: 
  Country: None (occurrence: None)
  Receive Date: 20060526
  Receipt Date: 20060228
  Transmission Date: 20061013
  Serious: Yes (Hospitalization, Other)
  Sender: FDA-Public Use
  Company Number: PHEH2006US01988

PATIENT
  Age: 46 Year
  Sex: Female

DRUGS (1)
  1. DESFERAL [Suspect]
     Indication: BLOOD IRON INCREASED
     Dosage: ONCE/SINGLE, INJECTION NOS

REACTIONS (8)
  - ANAPHYLACTIC REACTION [None]
  - DIARRHOEA [None]
  - DYSPNOEA [None]
  - EYE SWELLING [None]
  - NAUSEA [None]
  - PHARYNGEAL OEDEMA [None]
  - SKIN DISCOLOURATION [None]
  - VOMITING [None]
